FAERS Safety Report 8526664 (Version 4)
Quarter: 2013Q3

REPORT INFORMATION
  Report Type: Report from Study
  Country: PT (occurrence: PT)
  Receive Date: 20120423
  Receipt Date: 20130723
  Transmission Date: 20140515
  Serious: Yes (Hospitalization)
  Sender: FDA-Public Use
  Company Number: PT-ROCHE-1059391

PATIENT
  Age: 48 Year
  Sex: Male
  Weight: 78 kg

DRUGS (2)
  1. PEG-INTERFERON ALFA 2A [Suspect]
     Indication: HEPATITIS C
     Route: 058
     Dates: start: 20110408, end: 20120316
  2. REBETOL [Suspect]
     Indication: HEPATITIS C
     Dosage: 600 MG, 800 MG
     Route: 048
     Dates: start: 20110408, end: 20120316

REACTIONS (2)
  - Anaemia [Recovered/Resolved]
  - Nephrotic syndrome [Not Recovered/Not Resolved]
